FAERS Safety Report 9779832 (Version 1)
Quarter: 2013Q4

REPORT INFORMATION
  Report Type: Report from Study
  Country: DE (occurrence: DE)
  Receive Date: 20131223
  Receipt Date: 20131223
  Transmission Date: 20140711
  Serious: Yes (Hospitalization)
  Sender: FDA-Public Use
  Company Number: DE-GLAXOSMITHKLINE-D0081946A

PATIENT
  Age: 42 Year
  Sex: Male
  Weight: 78 kg

DRUGS (2)
  1. DABRAFENIB [Suspect]
     Indication: MALIGNANT MELANOMA
     Dosage: 150MG TWICE PER DAY
     Route: 048
     Dates: start: 20111030, end: 20111121
  2. IBEROGAST [Concomitant]
     Indication: NAUSEA
     Route: 065

REACTIONS (17)
  - Lactic acidosis [Recovered/Resolved]
  - Hepatic enzyme increased [Not Recovered/Not Resolved]
  - Vomiting [Recovered/Resolved]
  - Nausea [Recovered/Resolved]
  - Disease progression [Unknown]
  - Gallbladder oedema [Unknown]
  - Metastases to liver [Unknown]
  - Hepatomegaly [Unknown]
  - Splenomegaly [Unknown]
  - Ascites [Unknown]
  - Pleural effusion [Unknown]
  - Lymphadenopathy [Unknown]
  - Bone disorder [Unknown]
  - Gallbladder enlargement [Unknown]
  - Pericardial effusion [Unknown]
  - Lung infiltration [Unknown]
  - Cholecystitis [Unknown]
